FAERS Safety Report 23196990 (Version 1)
Quarter: 2023Q4

REPORT INFORMATION
  Report Type: Spontaneous
  Country: US (occurrence: None)
  Receive Date: 20231116
  Receipt Date: 20231116
  Transmission Date: 20240110
  Serious: Yes (Other)
  Sender: FDA-Public Use
  Company Number: None

PATIENT
  Age: 61 Year
  Sex: Female
  Weight: 67.5 kg

DRUGS (1)
  1. ZEPOSIA [Suspect]
     Active Substance: OZANIMOD HYDROCHLORIDE
     Indication: Colitis ulcerative
     Dosage: OTHER QUANTITY : 1 CAPSULE(S);?FREQUENCY : DAILY;?
     Route: 048
     Dates: start: 20230915, end: 20231101

REACTIONS (3)
  - Hepatic enzyme increased [None]
  - Eye inflammation [None]
  - Blood disorder [None]

NARRATIVE: CASE EVENT DATE: 20231024
